FAERS Safety Report 14124124 (Version 3)
Quarter: 2018Q1

REPORT INFORMATION
  Report Type: Spontaneous
  Country: IT (occurrence: IT)
  Receive Date: 20171025
  Receipt Date: 20180209
  Transmission Date: 20180508
  Serious: Yes (Life-Threatening, Other)
  Sender: FDA-Public Use
  Company Number: IT-SHIRE-IT201726951

PATIENT

DRUGS (8)
  1. VINCRISTINE [Concomitant]
     Active Substance: VINCRISTINE
     Dosage: 2 MG, 1X/WEEK
     Route: 042
     Dates: start: 20170803, end: 20170803
  2. DAUNORUBICIN [Concomitant]
     Active Substance: DAUNORUBICIN
     Indication: PRECURSOR B-LYMPHOBLASTIC LYMPHOMA
     Dosage: 47.4 MG, 1X/WEEK
     Route: 042
     Dates: start: 20170810, end: 20170810
  3. VINCRISTINE [Concomitant]
     Active Substance: VINCRISTINE
     Dosage: 2 MG, 1X/WEEK
     Route: 042
     Dates: start: 20170727, end: 20170727
  4. DAUNORUBICIN [Concomitant]
     Active Substance: DAUNORUBICIN
     Dosage: 47.40 MG, UNK
     Route: 042
     Dates: start: 20170727, end: 20170727
  5. VINCRISTINE [Concomitant]
     Active Substance: VINCRISTINE
     Indication: PRECURSOR B-LYMPHOBLASTIC LYMPHOMA
     Dosage: 2 MG, 1X/WEEK
     Route: 042
     Dates: start: 20170810, end: 20170810
  6. ONCASPAR [Suspect]
     Active Substance: PEGASPARGASE
     Indication: PRECURSOR B-LYMPHOBLASTIC LYMPHOMA
     Dosage: 3750 IU, UNK
     Route: 042
     Dates: start: 20170731, end: 20170731
  7. PREDNISONE. [Concomitant]
     Active Substance: PREDNISONE
     Indication: PRECURSOR B-LYMPHOBLASTIC LYMPHOMA
     Dosage: 30 MG, 3X/DAY:TID
     Route: 048
     Dates: start: 20170720, end: 20170811
  8. DAUNORUBICIN [Concomitant]
     Active Substance: DAUNORUBICIN
     Dosage: 47.50 MG, UNK
     Route: 042
     Dates: start: 20170803, end: 20170803

REACTIONS (6)
  - Pancreatitis acute [Recovering/Resolving]
  - Hypotension [Recovering/Resolving]
  - Abdominal pain [Recovering/Resolving]
  - Amylase increased [Recovering/Resolving]
  - Pancreatitis necrotising [Recovering/Resolving]
  - Lipase increased [Recovering/Resolving]

NARRATIVE: CASE EVENT DATE: 20170816
